FAERS Safety Report 19845152 (Version 1)
Quarter: 2021Q3

REPORT INFORMATION
  Report Type: Spontaneous
  Country: US (occurrence: US)
  Receive Date: 20210916
  Receipt Date: 20210916
  Transmission Date: 20211014
  Serious: Yes (Other)
  Sender: FDA-Public Use
  Company Number: NVSC2021US209464

PATIENT
  Age: 54 Year
  Sex: Female

DRUGS (4)
  1. RANITIDINE. [Suspect]
     Active Substance: RANITIDINE
     Indication: DYSPEPSIA
     Dosage: 150 MG, QD
     Route: 065
     Dates: start: 200401, end: 201807
  2. RANITIDINE. [Suspect]
     Active Substance: RANITIDINE
     Indication: CHEST PAIN
  3. RANITIDINE. [Suspect]
     Active Substance: RANITIDINE
     Indication: DYSPEPSIA
     Dosage: 150 MG, QD
     Route: 065
     Dates: start: 200401, end: 201807
  4. RANITIDINE. [Suspect]
     Active Substance: RANITIDINE
     Indication: CHEST PAIN

REACTIONS (2)
  - Incorrect dose administered [Unknown]
  - Breast cancer [Recovering/Resolving]

NARRATIVE: CASE EVENT DATE: 20130501
